FAERS Safety Report 5067258-X (Version None)
Quarter: 2006Q3

REPORT INFORMATION
  Report Type: 
  Country: None (occurrence: None)
  Receive Date: 20060727
  Receipt Date: 20060720
  Transmission Date: 20061208
  Serious: Yes (Hospitalization)
  Sender: FDA-Public Use
  Company Number: 200613128GDS

PATIENT
  Age: 56 Year
  Sex: Male
  Weight: 80 kg

DRUGS (2)
  1. NEXAVAR [Suspect]
     Indication: HEPATIC NEOPLASM MALIGNANT
     Dosage: 400 MG BID ORAL
     Route: 048
     Dates: start: 20060529, end: 20060717
  2. DIAMICRON [Concomitant]

REACTIONS (3)
  - CONDITION AGGRAVATED [None]
  - GASTROENTERITIS RADIATION [None]
  - RADIATION SKIN INJURY [None]
